FAERS Safety Report 4342775-6 (Version None)
Quarter: 2004Q2

REPORT INFORMATION
  Report Type: 
  Country: None (occurrence: None)
  Receive Date: 20040416
  Receipt Date: 19960208
  Transmission Date: 20050107
  Serious: Yes (Death, Life-Threatening, Hospitalization)
  Sender: FDA-Public Use
  Company Number: WAES 96041442

PATIENT
  Age: 11 Day
  Sex: Female

DRUGS (6)
  1. INDOCIN I.V. [Suspect]
     Indication: PATENT DUCTUS ARTERIOSUS
     Dosage: SEE IMAGE
     Route: 048
     Dates: start: 19950725, end: 19950725
  2. INDOCIN I.V. [Suspect]
     Indication: PATENT DUCTUS ARTERIOSUS
     Dosage: SEE IMAGE
     Route: 048
     Dates: start: 19950726, end: 19950726
  3. ASSISTED VENTILATION [Concomitant]
  4. DOPAMINE HCL [Concomitant]
  5. FUROSEMIDE [Concomitant]
  6. PHOTOTHERAPY [Concomitant]

REACTIONS (12)
  - ACIDOSIS [None]
  - ANAEMIA NEONATAL [None]
  - BACTERIAL SEPSIS [None]
  - CARDIAC FAILURE [None]
  - CARDIAC MURMUR [None]
  - CIRCULATORY FAILURE NEONATAL [None]
  - CONDITION AGGRAVATED [None]
  - DECREASED ACTIVITY [None]
  - NEONATAL DISORDER [None]
  - SEPSIS NEONATAL [None]
  - THROMBOCYTOPENIA NEONATAL [None]
  - THROMBOSIS [None]
